FAERS Safety Report 22231135 (Version 1)
Quarter: 2023Q2

REPORT INFORMATION
  Report Type: Spontaneous
  Country: US (occurrence: None)
  Receive Date: 20230420
  Receipt Date: 20230420
  Transmission Date: 20230722
  Serious: No
  Sender: FDA-Public Use
  Company Number: US-ROCHE-3259280

PATIENT
  Sex: Male

DRUGS (1)
  1. XOFLUZA [Suspect]
     Active Substance: BALOXAVIR MARBOXIL
     Indication: Influenza
     Route: 065

REACTIONS (6)
  - Abnormal dreams [Unknown]
  - Feeling abnormal [Unknown]
  - Diarrhoea [Unknown]
  - Feeling abnormal [Unknown]
  - Nervous system disorder [Unknown]
  - Mental disorder [Unknown]
